FAERS Safety Report 21475208 (Version 2)
Quarter: 2022Q4

REPORT INFORMATION
  Report Type: Report from Study
  Country: US (occurrence: None)
  Receive Date: 20221019
  Receipt Date: 20221116
  Transmission Date: 20230112
  Serious: Yes (Hospitalization)
  Sender: FDA-Public Use
  Company Number: US-Merck Healthcare KGaA-9342029

PATIENT
  Age: 55 Year
  Sex: Male

DRUGS (2)
  1. REBIF [Suspect]
     Active Substance: INTERFERON BETA-1A
     Indication: Multiple sclerosis
     Dosage: FIRST SHIPPED DATE: 25 AUG 2015
     Route: 058
     Dates: end: 202205
  2. REBIF [Suspect]
     Active Substance: INTERFERON BETA-1A
     Dosage: SHIPMENT DATE 11 OCT 2022
     Route: 058

REACTIONS (3)
  - Furuncle [Recovered/Resolved]
  - Injection site abscess [Recovering/Resolving]
  - Product administration interrupted [Unknown]

NARRATIVE: CASE EVENT DATE: 20220501
